FAERS Safety Report 4343161-5 (Version None)
Quarter: 2004Q2

REPORT INFORMATION
  Report Type: 
  Country: None (occurrence: None)
  Receive Date: 20040416
  Receipt Date: 20040405
  Transmission Date: 20050107
  Serious: Yes (Hospitalization, Other)
  Sender: FDA-Public Use
  Company Number: US-JNJFOC-20031100566

PATIENT
  Age: 71 Year
  Sex: Female
  Weight: 60.782 kg

DRUGS (8)
  1. REMICADE [Suspect]
     Indication: RHEUMATOID ARTHRITIS
     Dosage: SEE IMAGE
     Route: 042
     Dates: start: 20020101
  2. REMICADE [Suspect]
     Indication: RHEUMATOID ARTHRITIS
     Dosage: SEE IMAGE
     Route: 042
     Dates: start: 20030115
  3. PREDNISONE [Concomitant]
  4. ACTONEL [Concomitant]
  5. HYDROXYCHLOROQUINE SULFATE [Concomitant]
  6. LORAZEPAM [Concomitant]
  7. METHOTREXATE [Concomitant]
  8. PLAQUENIL [Concomitant]

REACTIONS (23)
  - ANAEMIA [None]
  - ANASTOMOTIC LEAK [None]
  - ASCITES [None]
  - CARDIAC FAILURE CONGESTIVE [None]
  - COLON CANCER METASTATIC [None]
  - DEHYDRATION [None]
  - DIZZINESS POSTURAL [None]
  - ELECTROCARDIOGRAM T WAVE INVERSION [None]
  - FALL [None]
  - IMMUNOSUPPRESSION [None]
  - INFECTION [None]
  - MALNUTRITION [None]
  - MYOCARDIAL INFARCTION [None]
  - NEUTROPENIA [None]
  - PANCREATITIS [None]
  - PERITONITIS [None]
  - PLEURAL EFFUSION [None]
  - PLEURITIC PAIN [None]
  - POST PROCEDURAL DIARRHOEA [None]
  - POST PROCEDURAL NAUSEA [None]
  - POST PROCEDURAL VOMITING [None]
  - PROTEIN TOTAL DECREASED [None]
  - SPINAL COMPRESSION FRACTURE [None]
